FAERS Safety Report 13372515 (Version 1)
Quarter: 2017Q1

REPORT INFORMATION
  Report Type: Spontaneous
  Country: US (occurrence: US)
  Receive Date: 20170327
  Receipt Date: 20170327
  Transmission Date: 20170429
  Serious: No
  Sender: FDA-Public Use
  Company Number: US-INTERPRAG-PM-OCA2017-00095

PATIENT

DRUGS (33)
  1. URSODIOL. [Concomitant]
     Active Substance: URSODIOL
  2. VITAMIN E                          /00110501/ [Concomitant]
     Active Substance: TOCOPHEROL
  3. BENZONATATE. [Concomitant]
     Active Substance: BENZONATATE
  4. SIMVASTATIN. [Concomitant]
     Active Substance: SIMVASTATIN
  5. FLUTICASONE. [Concomitant]
     Active Substance: FLUTICASONE
  6. MAG64 [Concomitant]
  7. PROAIR HFA [Concomitant]
     Active Substance: ALBUTEROL SULFATE
  8. HYDROXYZINE [Concomitant]
     Active Substance: HYDROXYZINE HYDROCHLORIDE
  9. BACLOFEN. [Concomitant]
     Active Substance: BACLOFEN
  10. DICLOFENAC [Concomitant]
     Active Substance: DICLOFENAC
  11. PREDNISONE. [Concomitant]
     Active Substance: PREDNISONE
  12. OXYCODONE [Concomitant]
     Active Substance: OXYCODONE
  13. AZITHROMYCIN ANHYDROUS. [Concomitant]
     Active Substance: AZITHROMYCIN ANHYDROUS
  14. VENTOLIN [Concomitant]
     Active Substance: ALBUTEROL SULFATE
  15. DULOXETINE. [Concomitant]
     Active Substance: DULOXETINE
  16. SULFAMETHAZINE [Concomitant]
     Active Substance: SULFAMETHAZINE
  17. CRESTOR [Concomitant]
     Active Substance: ROSUVASTATIN CALCIUM
  18. ALENDRONATE [Concomitant]
     Active Substance: ALENDRONATE SODIUM
  19. CLOPIDOGREL [Concomitant]
     Active Substance: CLOPIDOGREL BISULFATE
  20. VITAMIN D3 [Concomitant]
     Active Substance: CHOLECALCIFEROL
  21. NAPROXEN. [Concomitant]
     Active Substance: NAPROXEN
  22. ONDANSETRON [Concomitant]
     Active Substance: ONDANSETRON
  23. MOMETASONE FUROATE. [Concomitant]
     Active Substance: MOMETASONE FUROATE
  24. METHYLPREDNISOLONE. [Concomitant]
     Active Substance: METHYLPREDNISOLONE
  25. DOXYCYCLINE. [Concomitant]
     Active Substance: DOXYCYCLINE
  26. OCALIVA [Suspect]
     Active Substance: OBETICHOLIC ACID
     Indication: BILIARY CIRRHOSIS PRIMARY
     Dosage: 5 MG, QD
     Route: 048
     Dates: start: 20161223, end: 20170109
  27. TRAZODONE [Concomitant]
     Active Substance: TRAZODONE HYDROCHLORIDE
  28. ANTIPYRINE + BENZOCAINE [Concomitant]
  29. CITALOPRAM [Concomitant]
     Active Substance: CITALOPRAM HYDROBROMIDE
  30. VICODIN [Concomitant]
     Active Substance: ACETAMINOPHEN\HYDROCODONE BITARTRATE
  31. HYDROMET                           /00112601/ [Concomitant]
  32. PROVENTIL [Concomitant]
     Active Substance: ALBUTEROL
  33. VITAMIN C [Concomitant]
     Active Substance: ASCORBIC ACID

REACTIONS (1)
  - Pruritus [Recovered/Resolved]

NARRATIVE: CASE EVENT DATE: 20161223
